FAERS Safety Report 17222314 (Version 1)
Quarter: 2020Q1

REPORT INFORMATION
  Report Type: Spontaneous
  Country: US (occurrence: US)
  Receive Date: 20200101
  Receipt Date: 20200101
  Transmission Date: 20200409
  Serious: No
  Sender: FDA-Public Use
  Company Number: US-ASTRAZENECA-2019SF76432

PATIENT
  Age: 33 Year
  Sex: Female
  Weight: 99.8 kg

DRUGS (11)
  1. FASENRA [Suspect]
     Active Substance: BENRALIZUMAB
     Indication: ASTHMA
     Dosage: 30 MG EVERY 4 WEEKS FOR FIRST 3 DOSES, THEN EVERY 8 WEEKS AFTER
     Route: 058
     Dates: start: 20191112
  2. ALBUTEROL. [Concomitant]
     Active Substance: ALBUTEROL
     Dosage: AS REQUIRED
     Route: 055
  3. SYMBICORT [Suspect]
     Active Substance: BUDESONIDE\FORMOTEROL FUMARATE DIHYDRATE
     Dosage: 160/4.5 MCG UNKNOWN
     Route: 055
  4. EPIPEN [Concomitant]
     Active Substance: EPINEPHRINE
     Dosage: AS REQUIRED
     Route: 065
  5. DUO NEBULIZER IPRATROPIUM ALBUTEROL [Concomitant]
     Dosage: AS REQUIRED
     Route: 065
  6. IRON [Concomitant]
     Active Substance: IRON
  7. VITAMIN D3 [Concomitant]
     Active Substance: CHOLECALCIFEROL
     Dosage: UNKNOWN
     Route: 065
  8. ZANTAC [Concomitant]
     Active Substance: RANITIDINE HYDROCHLORIDE
     Dosage: 150.0MG UNKNOWN
     Route: 065
  9. BUDESONIDE. [Concomitant]
     Active Substance: BUDESONIDE
     Dosage: UNKNOWN
     Route: 065
  10. PRENATAL VITAMIN [Concomitant]
     Active Substance: VITAMINS
     Dosage: UNKNOWN
     Route: 065
  11. TOBRAMYCIN. [Concomitant]
     Active Substance: TOBRAMYCIN
     Dosage: UNKNOWN
     Route: 065

REACTIONS (3)
  - Chest pain [Recovered/Resolved]
  - Drug ineffective [Unknown]
  - Pain in extremity [Recovered/Resolved]
